FAERS Safety Report 4887178-0 (Version None)
Quarter: 2005Q4

REPORT INFORMATION
  Report Type: 
  Country: None (occurrence: None)
  Receive Date: 20051223
  Receipt Date: 20050315
  Transmission Date: 20060501
  Serious: Yes (Hospitalization, Other)
  Sender: FDA-Public Use
  Company Number: USA040361819

PATIENT
  Age: 49 Year
  Sex: Female

DRUGS (5)
  1. ILETIN-PORK NPH INSULIN(INSULIN, ANIMAL) [Suspect]
     Dates: start: 19680901
  2. ILETIN-PORK REGULAR INSULIN(INSULIN, ANIMAL) [Suspect]
     Dates: start: 19680101
  3. ILETIN [Suspect]
     Dates: start: 19680101
  4. HUMULIN N [Suspect]
  5. LISINOPRIL [Concomitant]

REACTIONS (19)
  - ATROPHY [None]
  - BLINDNESS UNILATERAL [None]
  - BLOOD GLUCOSE DECREASED [None]
  - BLOOD GLUCOSE FLUCTUATION [None]
  - BLOOD GLUCOSE INCREASED [None]
  - DRUG HYPERSENSITIVITY [None]
  - ERYTHEMA [None]
  - FURUNCLE [None]
  - INJECTION SITE NODULE [None]
  - INJECTION SITE RASH [None]
  - INSULIN RESISTANCE [None]
  - JOINT SPRAIN [None]
  - KETOACIDOSIS [None]
  - OPTIC NERVE DISORDER [None]
  - RASH [None]
  - RASH GENERALISED [None]
  - SKIN INDURATION [None]
  - VISUAL ACUITY REDUCED [None]
  - WEIGHT DECREASED [None]
